FAERS Safety Report 13430663 (Version 1)
Quarter: 2017Q2

REPORT INFORMATION
  Report Type: Spontaneous
  Country: US (occurrence: US)
  Receive Date: 20170411
  Receipt Date: 20170411
  Transmission Date: 20170830
  Serious: Yes (Hospitalization)
  Sender: FDA-Public Use
  Company Number: None

PATIENT
  Age: 77 Year
  Sex: Female
  Weight: 67.9 kg

DRUGS (1)
  1. WARFARIN [Suspect]
     Active Substance: WARFARIN
     Dates: start: 20160802

REACTIONS (4)
  - Subdural haematoma [None]
  - Fall [None]
  - Cerebral haemorrhage [None]
  - Subarachnoid haemorrhage [None]

NARRATIVE: CASE EVENT DATE: 20160802
